FAERS Safety Report 14452869 (Version 2)
Quarter: 2020Q2

REPORT INFORMATION
  Report Type: Spontaneous
  Country: US (occurrence: US)
  Receive Date: 20180129
  Receipt Date: 20200522
  Transmission Date: 20200713
  Serious: No
  Sender: FDA-Public Use
  Company Number: US-TEVA-798563USA

PATIENT
  Sex: Male

DRUGS (2)
  1. LISINOPRIL. [Suspect]
     Active Substance: LISINOPRIL
  2. METOPROLOL TARTRATE. [Suspect]
     Active Substance: METOPROLOL TARTRATE

REACTIONS (6)
  - Anorectal discomfort [Unknown]
  - Renal pain [Unknown]
  - Anal pruritus [Unknown]
  - Blood urine present [Unknown]
  - Irritable bowel syndrome [Unknown]
  - Back pain [Unknown]

NARRATIVE: CASE EVENT DATE: 2016
